FAERS Safety Report 5509389-3 (Version None)
Quarter: 2007Q4

REPORT INFORMATION
  Report Type: 
  Country: None (occurrence: None)
  Receive Date: 20071107
  Receipt Date: 20071102
  Transmission Date: 20080405
  Serious: Yes (Hospitalization)
  Sender: FDA-Public Use
  Company Number: US-MERCK-0711USA00648

PATIENT
  Age: 65 Year
  Sex: Female

DRUGS (15)
  1. JANUVIA [Suspect]
     Indication: DIABETES MELLITUS
     Route: 048
     Dates: start: 20071002, end: 20071013
  2. DILTIAZEM HYDROCHLORIDE [Concomitant]
     Route: 065
  3. PREVACID [Concomitant]
     Route: 065
  4. METFORMIN [Concomitant]
     Route: 065
  5. [THERAPY UNSPECIFIED] [Concomitant]
     Route: 065
  6. [THERAPY UNSPECIFIED] [Concomitant]
     Route: 065
  7. PROAIR HFA [Concomitant]
     Route: 065
  8. TEMAZEPAM [Concomitant]
     Route: 065
  9. VALIUM [Concomitant]
     Route: 065
  10. [THERAPY UNSPECIFIED] [Concomitant]
     Route: 065
  11. PERCOCET [Concomitant]
     Route: 065
  12. ASCORBIC ACID [Concomitant]
     Route: 065
  13. CALCIUM (UNSPECIFIED) [Concomitant]
     Route: 065
  14. [THERAPY UNSPECIFIED] [Concomitant]
     Route: 065
  15. VITAMIN B (UNSPECIFIED) [Concomitant]
     Route: 065

REACTIONS (5)
  - COUGH [None]
  - PHARYNGEAL ERYTHEMA [None]
  - PHARYNGEAL OEDEMA [None]
  - PHARYNGOLARYNGEAL PAIN [None]
  - THROAT TIGHTNESS [None]
